FAERS Safety Report 19391492 (Version 2)
Quarter: 2022Q1

REPORT INFORMATION
  Report Type: Spontaneous
  Country: US (occurrence: US)
  Receive Date: 20210609
  Receipt Date: 20220124
  Transmission Date: 20220423
  Serious: No
  Sender: FDA-Public Use
  Company Number: US-GILEAD-2021-0534894

PATIENT
  Age: 56 Year
  Sex: Female
  Weight: 86.168 kg

DRUGS (97)
  1. VIREAD [Suspect]
     Active Substance: TENOFOVIR DISOPROXIL FUMARATE
     Indication: HIV infection
     Dosage: UNK
     Route: 048
     Dates: start: 20100625, end: 20101104
  2. VIREAD [Suspect]
     Active Substance: TENOFOVIR DISOPROXIL FUMARATE
     Dosage: UNK
     Route: 048
     Dates: start: 20130409, end: 201402
  3. VIREAD [Suspect]
     Active Substance: TENOFOVIR DISOPROXIL FUMARATE
     Dosage: UNK
     Route: 048
     Dates: start: 20140203, end: 20140305
  4. VIREAD [Suspect]
     Active Substance: TENOFOVIR DISOPROXIL FUMARATE
     Dosage: UNK
     Route: 048
     Dates: start: 20140915, end: 20150315
  5. VIREAD [Suspect]
     Active Substance: TENOFOVIR DISOPROXIL FUMARATE
     Dosage: UNK
     Route: 048
     Dates: start: 20150325, end: 20151001
  6. VIREAD [Suspect]
     Active Substance: TENOFOVIR DISOPROXIL FUMARATE
     Dosage: UNK
     Route: 048
     Dates: start: 20151002, end: 20160915
  7. VIREAD [Suspect]
     Active Substance: TENOFOVIR DISOPROXIL FUMARATE
     Dosage: UNK
     Route: 048
     Dates: start: 20160928, end: 20170224
  8. ODEFSEY [Concomitant]
     Active Substance: EMTRICITABINE\RILPIVIRINE HYDROCHLORIDE\TENOFOVIR ALAFENAMIDE FUMARATE
  9. INTELENCE [Concomitant]
     Active Substance: ETRAVIRINE
  10. ISENTRESS [Concomitant]
     Active Substance: RALTEGRAVIR POTASSIUM
  11. PREZISTA [Concomitant]
     Active Substance: DARUNAVIR ETHANOLATE
  12. COMBIVIR [Concomitant]
     Active Substance: LAMIVUDINE\ZIDOVUDINE
  13. ACETAMINOPHEN [Concomitant]
     Active Substance: ACETAMINOPHEN
  14. ACYCLOVIR [Concomitant]
     Active Substance: ACYCLOVIR
  15. ADAPALENE [Concomitant]
     Active Substance: ADAPALENE
  16. ADVAIR HFA [Concomitant]
     Active Substance: FLUTICASONE PROPIONATE\SALMETEROL XINAFOATE
  17. AFLURIA NOS [Concomitant]
     Active Substance: INFLUENZA VIRUS VACCINE TRIVALENT TYPE A+B AFLURIA
  18. ALBUTEROL [Concomitant]
     Active Substance: ALBUTEROL
  19. ALLOPURINOL [Concomitant]
     Active Substance: ALLOPURINOL
  20. ALPRAZOLAM [Concomitant]
     Active Substance: ALPRAZOLAM
  21. AMBIEN [Concomitant]
     Active Substance: ZOLPIDEM TARTRATE
  22. AMBIEN CR [Concomitant]
     Active Substance: ZOLPIDEM TARTRATE
  23. AMLODIPINE [Concomitant]
     Active Substance: AMLODIPINE BESYLATE
  24. AMLODIPINE BESYLATE [Concomitant]
     Active Substance: AMLODIPINE BESYLATE
  25. AMOXICILLIN [Concomitant]
     Active Substance: AMOXICILLIN
  26. ASPEN [ACETYLSALICYLIC ACID] [Concomitant]
  27. ATELVIA [Concomitant]
     Active Substance: RISEDRONATE SODIUM
  28. AZITHROMYCIN [Concomitant]
     Active Substance: AZITHROMYCIN
  29. BENZONATATE [Concomitant]
     Active Substance: BENZONATATE
  30. BOOSTRIX [Concomitant]
     Active Substance: TETANUS TOXOID, REDUCED DIPHTHERIA TOXOID AND ACELLULAR PERTUSSIS VACCINE, ADSORBED ANTIGENS
  31. BUPROPION [Concomitant]
     Active Substance: BUPROPION
  32. CEFDINIR [Concomitant]
     Active Substance: CEFDINIR
  33. CEPHALEXIN [Concomitant]
     Active Substance: CEPHALEXIN
  34. CETIRIZINE [Concomitant]
     Active Substance: CETIRIZINE HYDROCHLORIDE
  35. AMMONIUM CHLORIDE\DEXTROMETHORPHAN\SODIUM CITRATE [Concomitant]
     Active Substance: AMMONIUM CHLORIDE\DEXTROMETHORPHAN\SODIUM CITRATE
  36. CHLORHEXIDINE [Concomitant]
     Active Substance: CHLORHEXIDINE
  37. CHOLESTYRAMINE [Concomitant]
     Active Substance: CHOLESTYRAMINE
  38. CLOTRIMAZOLE [Concomitant]
     Active Substance: CLOTRIMAZOLE
  39. COLCHICINE [Concomitant]
     Active Substance: COLCHICINE
  40. CYANOCOBALAMIN [Concomitant]
     Active Substance: CYANOCOBALAMIN
  41. CYCLOBENZAPRINE [Concomitant]
     Active Substance: CYCLOBENZAPRINE
  42. DICLOFENAC [Concomitant]
     Active Substance: DICLOFENAC
  43. DIFFERIN [Concomitant]
     Active Substance: ADAPALENE
  44. ENDOCET [Concomitant]
     Active Substance: ACETAMINOPHEN\OXYCODONE HYDROCHLORIDE
  45. ESZOPICLONE [Concomitant]
     Active Substance: ESZOPICLONE
  46. EZETIMIBE [Concomitant]
     Active Substance: EZETIMIBE
  47. FAMOTIDINE [Concomitant]
     Active Substance: FAMOTIDINE
  48. FEXOFENADINE [Concomitant]
     Active Substance: FEXOFENADINE HYDROCHLORIDE
  49. FLUCONAZOLE [Concomitant]
     Active Substance: FLUCONAZOLE
  50. FLUTICASONE [Concomitant]
     Active Substance: FLUTICASONE
  51. FLUVIRIN [INFLUENZA VACCINE INACT SAG 3V] [Concomitant]
  52. FLUZONE [Concomitant]
     Active Substance: INFLUENZA A VIRUS A/CALIFORNIA/7/2009 X-179A (H1N1) ANTIGEN (FORMALDEHYDE INACTIVATED)\INFLUENZA A V
  53. GABAPENTIN [Concomitant]
     Active Substance: GABAPENTIN
  54. GENTLE LAXATIVE [Concomitant]
     Active Substance: BISACODYL
  55. HYDROCHLOROTHIAZIDE [Concomitant]
     Active Substance: HYDROCHLOROTHIAZIDE
  56. HYDROQUINONE [Concomitant]
     Active Substance: HYDROQUINONE
  57. LEVAQUIN [Concomitant]
     Active Substance: LEVOFLOXACIN
  58. LISINOPRIL [Concomitant]
     Active Substance: LISINOPRIL
  59. LORATADINE [Concomitant]
     Active Substance: LORATADINE
  60. LUNESTA [Concomitant]
     Active Substance: ESZOPICLONE
  61. MAALOX ANTACID [Concomitant]
     Active Substance: ALUMINUM HYDROXIDE\DIMETHICONE\MAGNESIUM HYDROXIDE
  62. MAXIFED [Concomitant]
     Active Substance: GUAIFENESIN\PSEUDOEPHEDRINE HYDROCHLORIDE
  63. METHYLPREDNISOLONE [Concomitant]
     Active Substance: METHYLPREDNISOLONE
  64. METRONIDAZOLE [Concomitant]
     Active Substance: METRONIDAZOLE
  65. MOMETASONE [Concomitant]
     Active Substance: MOMETASONE
  66. NASACORT [Concomitant]
     Active Substance: TRIAMCINOLONE ACETONIDE
  67. NASONEX [Concomitant]
     Active Substance: MOMETASONE FUROATE
  68. NEXIUM I.V. [Concomitant]
     Active Substance: ESOMEPRAZOLE SODIUM
  69. NYSTATIN [Concomitant]
     Active Substance: NYSTATIN
  70. OLANZAPINE [Concomitant]
     Active Substance: OLANZAPINE
  71. OMEPRAZOLE [Concomitant]
     Active Substance: OMEPRAZOLE
  72. PNEUMOVAX 23 [Concomitant]
     Active Substance: PNEUMOCOCCAL VACCINE, POLYVALENT 23
  73. HIGH DENSITY POLYETHYLENE [Concomitant]
     Active Substance: HIGH DENSITY POLYETHYLENE
  74. PREDNISONE [Concomitant]
     Active Substance: PREDNISONE
  75. PREVNAR [Concomitant]
     Active Substance: PNEUMOCOCCAL 7-VALENT CONJUGATE VACCINE (DIPHTHERIA CRM197 PROTEIN)
  76. PRILOSEC [Concomitant]
     Active Substance: OMEPRAZOLE MAGNESIUM
  77. ASPIRIN [Concomitant]
     Active Substance: ASPIRIN
  78. BISACODYL [Concomitant]
     Active Substance: BISACODYL
  79. RANITIDINE [Concomitant]
     Active Substance: RANITIDINE
  80. SODIUM CHLORIDE [Concomitant]
     Active Substance: SODIUM CHLORIDE
  81. SELENIUM [Concomitant]
     Active Substance: SELENIUM
  82. SF 5000 PLUS [Concomitant]
     Active Substance: SODIUM FLUORIDE
  83. SIMVASTATIN [Concomitant]
     Active Substance: SIMVASTATIN
  84. SODIUM FLUORIDE [Concomitant]
     Active Substance: SODIUM FLUORIDE
  85. SPIRIVA [Concomitant]
     Active Substance: TIOTROPIUM BROMIDE MONOHYDRATE
  86. SUPREP BOWEL PREP [Concomitant]
     Active Substance: MAGNESIUM SULFATE\POTASSIUM SULFATE\SODIUM SULFATE
  87. TERCONAZOLE [Concomitant]
     Active Substance: TERCONAZOLE
  88. TIZANIDINE [Concomitant]
     Active Substance: TIZANIDINE
  89. TRAZODONE [Concomitant]
     Active Substance: TRAZODONE HYDROCHLORIDE
  90. TRETINOIN [Concomitant]
     Active Substance: TRETINOIN
  91. TRIAMCINOLONE [Concomitant]
     Active Substance: TRIAMCINOLONE
  92. VALACYCLOVIR [Concomitant]
     Active Substance: VALACYCLOVIR HYDROCHLORIDE
  93. VERAMYST [Concomitant]
     Active Substance: FLUTICASONE FUROATE
  94. DICLOFENAC [Concomitant]
     Active Substance: DICLOFENAC
  95. XYZAL [Concomitant]
     Active Substance: LEVOCETIRIZINE DIHYDROCHLORIDE
  96. ZOVIRAX [Concomitant]
     Active Substance: ACYCLOVIR
  97. ZURAMPIC [Concomitant]
     Active Substance: LESINURAD

REACTIONS (8)
  - Osteopenia [Not Recovered/Not Resolved]
  - Bone density decreased [Unknown]
  - Pain [Not Recovered/Not Resolved]
  - Emotional distress [Not Recovered/Not Resolved]
  - Anxiety [Not Recovered/Not Resolved]
  - Anhedonia [Not Recovered/Not Resolved]
  - Gait disturbance [Not Recovered/Not Resolved]
  - Exercise tolerance decreased [Not Recovered/Not Resolved]

NARRATIVE: CASE EVENT DATE: 20130801
